FAERS Safety Report 5061958-3 (Version None)
Quarter: 2006Q3

REPORT INFORMATION
  Report Type: 
  Country: None (occurrence: None)
  Receive Date: 20060721
  Receipt Date: 20060711
  Transmission Date: 20061208
  Serious: Yes (Other)
  Sender: FDA-Public Use
  Company Number: 2006086848

PATIENT
  Sex: Female
  Weight: 102.0593 kg

DRUGS (5)
  1. ZOLOFT [Suspect]
     Indication: DEPRESSION
     Dosage: 200 MG (1 D),
  2. INSULIN [Concomitant]
  3. PERCOCET [Concomitant]
  4. VALIUM [Concomitant]
  5. ACEBUTOLOL [Concomitant]

REACTIONS (10)
  - ABASIA [None]
  - ARTHRITIS [None]
  - CONDITION AGGRAVATED [None]
  - DRUG DEPENDENCE [None]
  - FIBROMYALGIA [None]
  - INSOMNIA [None]
  - NEUROPATHY [None]
  - PANIC ATTACK [None]
  - SOMNOLENCE [None]
  - TREATMENT NONCOMPLIANCE [None]
